FAERS Safety Report 5463022-8 (Version None)
Quarter: 2007Q3

REPORT INFORMATION
  Report Type: 
  Country: None (occurrence: None)
  Receive Date: 20070918
  Receipt Date: 20070918
  Transmission Date: 20080115
  Serious: Yes (Other)
  Sender: FDA-Public Use
  Company Number: None

PATIENT
  Age: 21 Year
  Sex: Female
  Weight: 77.1115 kg

DRUGS (1)
  1. SEROQUEL [Suspect]
     Indication: BIPOLAR DISORDER
     Dosage: 100MG QHS PO
     Route: 048
     Dates: start: 20070905, end: 20070910

REACTIONS (2)
  - ABNORMAL SLEEP-RELATED EVENT [None]
  - SOMNAMBULISM [None]
